FAERS Safety Report 24269643 (Version 1)
Quarter: 2024Q3

REPORT INFORMATION
  Report Type: Spontaneous
  Country: US (occurrence: US)
  Receive Date: 20240830
  Receipt Date: 20240830
  Transmission Date: 20241017
  Serious: No
  Sender: ENDO
  Company Number: US-ENDO USA, INC.-2024-001742

PATIENT
  Sex: Male

DRUGS (5)
  1. PREDNISONE [Suspect]
     Active Substance: PREDNISONE
     Indication: Eczema
     Dosage: UNK UNKNOWN, UNKNOWN
     Route: 065
     Dates: start: 202401
  2. PREDNISONE [Suspect]
     Active Substance: PREDNISONE
     Indication: Dermatitis contact
     Dosage: UNK UNKNOWN, UNKNOWN (HEAVY DOSE FOR A MONTH)
     Route: 065
     Dates: start: 2024
  3. PREDNISONE [Suspect]
     Active Substance: PREDNISONE
     Dosage: UNK UNKNOWN, UNKNOWN (COMING OFF)
     Route: 065
     Dates: start: 2024
  4. PREDNISONE [Suspect]
     Active Substance: PREDNISONE
     Dosage: UNK UNKNOWN, UNKNOWN (6 WEEKS STARIGHT)
     Route: 065
     Dates: start: 2024
  5. OCTAGAM IMMUNE GLOBULIN (HUMAN) [Concomitant]
     Active Substance: HUMAN IMMUNOGLOBULIN G
     Indication: Polyneuropathy alcoholic
     Dosage: UNK UNKNOWN, OD (10 PERCENT BY IV INFUSION ONCE A DAY FOR 4 DAYS)
     Route: 065
     Dates: start: 202401

REACTIONS (2)
  - Contusion [Unknown]
  - Therapeutic product effect incomplete [Unknown]

NARRATIVE: CASE EVENT DATE: 20240101
